FAERS Safety Report 25933325 (Version 3)
Quarter: 2025Q4

REPORT INFORMATION
  Report Type: Report from Study
  Country: US (occurrence: US)
  Receive Date: 20251017
  Receipt Date: 20251207
  Transmission Date: 20260117
  Serious: No
  Sender: SANDOZ
  Company Number: US-SANDOZ-SDZ2025US076440

PATIENT
  Sex: Male

DRUGS (4)
  1. OMNITROPE [Suspect]
     Active Substance: SOMATROPIN
     Indication: Short stature
     Dosage: 0.8 MG, QD, 10 MG/1.5 ML
     Route: 058
  2. OMNITROPE [Suspect]
     Active Substance: SOMATROPIN
     Indication: Short stature
     Dosage: 0.8 MG, QD, 10 MG/1.5 ML
     Route: 058
  3. OMNITROPE [Suspect]
     Active Substance: SOMATROPIN
     Indication: Hypopituitarism
     Dosage: 0.16 ML, QD
     Route: 058
  4. OMNITROPE [Suspect]
     Active Substance: SOMATROPIN
     Indication: Hypopituitarism
     Dosage: 0.16 ML, QD
     Route: 058

REACTIONS (4)
  - Injection site pain [Recovered/Resolved]
  - Circumstance or information capable of leading to device use error [Unknown]
  - Device issue [Unknown]
  - Device leakage [Unknown]
